FAERS Safety Report 12596024 (Version 5)
Quarter: 2016Q4

REPORT INFORMATION
  Report Type: Report from Study
  Country: US (occurrence: US)
  Receive Date: 20160726
  Receipt Date: 20161226
  Transmission Date: 20170207
  Serious: No
  Sender: FDA-Public Use
  Company Number: PHEH2016US018480

PATIENT
  Sex: Female
  Weight: 92.52 kg

DRUGS (7)
  1. VITAMIN D [Concomitant]
     Active Substance: CHOLECALCIFEROL
     Indication: PRODUCT USED FOR UNKNOWN INDICATION
     Dosage: 5000 IU (DURING THE FIRST TRIMESTER)
     Route: 048
     Dates: start: 20151201
  2. OMEPRAZOLE. [Concomitant]
     Active Substance: OMEPRAZOLE
     Indication: PRODUCT USED FOR UNKNOWN INDICATION
     Dosage: DURING THE FIRST TRIMESTER
     Route: 048
     Dates: start: 20160501, end: 20160721
  3. CYCLOBENZAPRINE [Concomitant]
     Active Substance: CYCLOBENZAPRINE
     Indication: MUSCLE SPASMS
     Dosage: 10 MG, BID
     Route: 048
     Dates: start: 20150430, end: 20160721
  4. VITAMIN D [Concomitant]
     Active Substance: CHOLECALCIFEROL
     Indication: VITAMIN D DEFICIENCY
     Dosage: 5000 MG, QD
     Route: 048
     Dates: start: 20150430, end: 20160721
  5. PRENATAL [Concomitant]
     Active Substance: VITAMINS
     Indication: PRODUCT USED FOR UNKNOWN INDICATION
     Dosage: PRIOR TO BECOMING PREGNANT BUT WITHIN LAST 2 MONTHS BEFORE LAST PERIOD; DURING THE FIRST TRIMESTER
     Route: 048
     Dates: start: 20150101
  6. VITAMIN B12 [Concomitant]
     Active Substance: CYANOCOBALAMIN
     Indication: PRODUCT USED FOR UNKNOWN INDICATION
     Dosage: PRIOR TO BECOMING PREGNANT BUT WITHIN LAST 2 MONTHS BEFORE LAST PERIOD; DURING THE FIRST TRIMESTER
     Route: 030
     Dates: start: 20160401
  7. GILENYA [Suspect]
     Active Substance: FINGOLIMOD HYDROCHLORIDE
     Indication: MULTIPLE SCLEROSIS
     Dosage: 0.5 MG, QD
     Route: 048
     Dates: start: 20160608, end: 20160721

REACTIONS (1)
  - Maternal exposure during pregnancy [Unknown]
